FAERS Safety Report 7435951-7 (Version None)
Quarter: 2011Q2

REPORT INFORMATION
  Report Type: 
  Country: None (occurrence: None)
  Receive Date: 20110425
  Receipt Date: 20110419
  Transmission Date: 20111010
  Serious: Yes (Hospitalization)
  Sender: FDA-Public Use
  Company Number: IT-CEPHALON-2011001945

PATIENT
  Sex: Male

DRUGS (4)
  1. URBASON SOLUBILE [Concomitant]
     Route: 042
     Dates: start: 20110215, end: 20110219
  2. TRISENOX [Suspect]
     Indication: ACUTE PROMYELOCYTIC LEUKAEMIA
     Route: 041
     Dates: start: 20110216, end: 20110219
  3. VESANOID [Concomitant]
     Route: 048
     Dates: start: 20110216, end: 20110220
  4. MEPRAL [Concomitant]
     Route: 042
     Dates: start: 20110215, end: 20110219

REACTIONS (1)
  - HEPATIC FAILURE [None]
